FAERS Safety Report 12346042 (Version 1)
Quarter: 2016Q2

REPORT INFORMATION
  Report Type: Spontaneous
  Country: US (occurrence: None)
  Receive Date: 20160506
  Receipt Date: 20160506
  Transmission Date: 20160815
  Serious: Yes (Hospitalization)
  Sender: FDA-Public Use
  Company Number: None

PATIENT
  Age: 36 Year
  Sex: Female
  Weight: 52.3 kg

DRUGS (1)
  1. CISPLATIN. [Suspect]
     Active Substance: CISPLATIN
     Dates: end: 20160411

REACTIONS (8)
  - Thrombocytopenia [None]
  - Chills [None]
  - Nausea [None]
  - Neutropenia [None]
  - Tachycardia [None]
  - Anaemia [None]
  - White blood cell count decreased [None]
  - Transfusion reaction [None]

NARRATIVE: CASE EVENT DATE: 20160420
